FAERS Safety Report 11153425 (Version 4)
Quarter: 2017Q2

REPORT INFORMATION
  Report Type: Report from Study
  Country: MY (occurrence: MY)
  Receive Date: 20150602
  Receipt Date: 20170407
  Transmission Date: 20170829
  Serious: Yes (Other)
  Sender: FDA-Public Use
  Company Number: PHHY2015MY062845

PATIENT
  Sex: Female

DRUGS (1)
  1. TASIGNA [Suspect]
     Active Substance: NILOTINIB
     Indication: CHRONIC MYELOID LEUKAEMIA
     Dosage: 400 MG, BID
     Route: 065
     Dates: end: 20150519

REACTIONS (4)
  - Lymph node tuberculosis [Unknown]
  - Premature delivery [Unknown]
  - Normal newborn [Unknown]
  - Maternal exposure during pregnancy [Unknown]
